FAERS Safety Report 7721471-9 (Version None)
Quarter: 2011Q3

REPORT INFORMATION
  Report Type: 
  Country: None (occurrence: None)
  Receive Date: 20110831
  Receipt Date: 20110824
  Transmission Date: 20111222
  Serious: Yes (Life-Threatening, Hospitalization, Other)
  Sender: FDA-Public Use
  Company Number: US-JNJFOC-20110809693

PATIENT
  Sex: Male
  Weight: 40 kg

DRUGS (5)
  1. PREDNISONE [Concomitant]
  2. PREVACID [Concomitant]
  3. INFLIXIMAB, RECOMBINANT [Suspect]
     Indication: CROHN'S DISEASE
     Route: 042
     Dates: start: 20101117
  4. FERROUS SULFATE TAB [Concomitant]
  5. PAMINE [Concomitant]

REACTIONS (2)
  - CROHN'S DISEASE [None]
  - CONCOMITANT DISEASE AGGRAVATED [None]
